FAERS Safety Report 4708192-1 (Version None)
Quarter: 2005Q3

REPORT INFORMATION
  Report Type: 
  Country: None (occurrence: None)
  Receive Date: 20050705
  Receipt Date: 20050705
  Transmission Date: 20060218
  Serious: Yes (Hospitalization)
  Sender: FDA-Public Use
  Company Number: None

PATIENT
  Sex: Male
  Weight: 127.9144 kg

DRUGS (3)
  1. DOXOROBICIN [Suspect]
     Indication: HODGKIN'S DISEASE
     Dosage: 62 MG QD WEEK IV
     Route: 042
     Dates: start: 20050629
  2. VINBLASTINE [Suspect]
     Indication: HODGKIN'S DISEASE
     Dosage: 14 MG QD WEEK IV
     Route: 042
     Dates: start: 20050629
  3. MECHLORETHAMINE [Concomitant]

REACTIONS (2)
  - ACTIVATED PARTIAL THROMBOPLASTIN TIME PROLONGED [None]
  - PROTHROMBIN TIME PROLONGED [None]
